FAERS Safety Report 5401639-7 (Version None)
Quarter: 2007Q3

REPORT INFORMATION
  Report Type: 
  Country: None (occurrence: None)
  Receive Date: 20070731
  Receipt Date: 20070604
  Transmission Date: 20080115
  Serious: Yes (Other)
  Sender: FDA-Public Use
  Company Number: US-PURDUE-USA_2007_0027940

PATIENT
  Sex: Female

DRUGS (1)
  1. OXYCONTIN [Suspect]
     Indication: BACK PAIN
     Dosage: 80 MG, UNK
     Dates: start: 19980101, end: 20060101

REACTIONS (3)
  - DEPRESSION SUICIDAL [None]
  - DRUG DEPENDENCE [None]
  - SUICIDE ATTEMPT [None]
